FAERS Safety Report 21301581 (Version 2)
Quarter: 2022Q3

REPORT INFORMATION
  Report Type: Report from Study
  Country: CN (occurrence: None)
  Receive Date: 20220907
  Receipt Date: 20220912
  Transmission Date: 20221027
  Serious: Yes (Hospitalization)
  Sender: FDA-Public Use
  Company Number: CN-ROCHE-3171405

PATIENT
  Age: 58 Year
  Sex: Male
  Weight: 70 kg

DRUGS (12)
  1. TIRAGOLUMAB [Suspect]
     Active Substance: TIRAGOLUMAB
     Indication: Oesophageal adenocarcinoma
     Dosage: DATE OF MOST RECENT DOSE PRIOR TO SAE ONSET: 11/AUG/2022
     Route: 042
     Dates: start: 20210812, end: 20220128
  2. TIRAGOLUMAB [Suspect]
     Active Substance: TIRAGOLUMAB
     Dosage: DATE OF MOST RECENT DOSE PRIOR TO SAE ONSET: 11/AUG/2022
     Route: 042
     Dates: start: 20220222, end: 20220830
  3. ATEZOLIZUMAB [Suspect]
     Active Substance: ATEZOLIZUMAB
     Indication: Oesophageal adenocarcinoma
     Dosage: DATE OF MOST RECENT DOSE PRIOR TO SAE ONSET: 11/AUG/2022
     Route: 041
     Dates: start: 20210812, end: 20220128
  4. ATEZOLIZUMAB [Suspect]
     Active Substance: ATEZOLIZUMAB
     Dosage: DATE OF MOST RECENT DOSE PRIOR TO SAE ONSET: 11/AUG/2022
     Route: 041
     Dates: start: 20220222, end: 20220830
  5. OXALIPLATIN [Suspect]
     Active Substance: OXALIPLATIN
     Indication: Oesophageal adenocarcinoma
     Route: 065
     Dates: start: 20210812
  6. CAPECITABINE [Suspect]
     Active Substance: CAPECITABINE
     Indication: Oesophageal adenocarcinoma
     Route: 048
     Dates: start: 20210812
  7. METFORMIN HYDROCHLORIDE [Concomitant]
     Active Substance: METFORMIN HYDROCHLORIDE
     Dates: start: 20210812
  8. DAPAGLIFLOZIN [Concomitant]
     Active Substance: DAPAGLIFLOZIN
     Dates: start: 20220812
  9. OXYCODONE [Concomitant]
     Active Substance: OXYCODONE
     Dates: start: 20210610
  10. ACETAMINOPHEN [Concomitant]
     Active Substance: ACETAMINOPHEN
     Dates: start: 20210610
  11. ESTAZOLAM [Concomitant]
     Active Substance: ESTAZOLAM
     Dates: start: 20210813
  12. DENOSUMAB [Concomitant]
     Active Substance: DENOSUMAB
     Dates: start: 20220215, end: 20220215

REACTIONS (1)
  - Type 2 diabetes mellitus [Not Recovered/Not Resolved]

NARRATIVE: CASE EVENT DATE: 20220824
